FAERS Safety Report 5914607-3 (Version None)
Quarter: 2008Q4

REPORT INFORMATION
  Report Type: 
  Country: None (occurrence: None)
  Receive Date: 20081008
  Receipt Date: 20080930
  Transmission Date: 20090506
  Serious: Yes (Hospitalization)
  Sender: FDA-Public Use
  Company Number: 99151

PATIENT
  Age: 24 Month
  Sex: Male
  Weight: 9.9791 kg

DRUGS (1)
  1. ACETAMINOPHEN [Suspect]
     Indication: PYREXIA
     Dosage: ORAL
     Route: 048
     Dates: start: 20080906, end: 20080919

REACTIONS (2)
  - EAR INFECTION [None]
  - INCORRECT DOSE ADMINISTERED [None]
